FAERS Safety Report 5556185-7 (Version None)
Quarter: 2007Q4

REPORT INFORMATION
  Report Type: 
  Country: None (occurrence: None)
  Receive Date: 20071130
  Receipt Date: 20071121
  Transmission Date: 20080405
  Serious: Yes (Hospitalization)
  Sender: FDA-Public Use
  Company Number: WAES 0711POL00014

PATIENT
  Age: 71 Year
  Sex: Male

DRUGS (8)
  1. COZAAR [Suspect]
     Dosage: PO
     Route: 048
     Dates: start: 20041025
  2. ACENOCOUMAROL [Concomitant]
  3. BISOPROLOL FUMARATE [Concomitant]
  4. FENOFIBRATE [Concomitant]
  5. FUROSEMIDE [Concomitant]
  6. GLICLAZIDE [Concomitant]
  7. POTASSIUM CHLORIDE [Concomitant]
  8. SPIRONOLACTONE [Concomitant]

REACTIONS (1)
  - BLADDER NEOPLASM [None]
